FAERS Safety Report 7773100-6 (Version None)
Quarter: 2011Q3

REPORT INFORMATION
  Report Type: 
  Country: None (occurrence: None)
  Receive Date: 20110922
  Receipt Date: 20100106
  Transmission Date: 20111222
  Serious: No
  Sender: FDA-Public Use
  Company Number: US-ASTRAZENECA-2009UW04926

PATIENT
  Age: 41 Year
  Sex: Male
  Weight: 94.8 kg

DRUGS (11)
  1. CLARITIN [Concomitant]
  2. LEXAPRO [Concomitant]
     Dates: start: 20050419
  3. RITALIN [Concomitant]
     Route: 048
     Dates: start: 20040911
  4. TOPROL-XL [Concomitant]
     Dates: start: 20050519
  5. COREG [Concomitant]
     Indication: HYPERTENSION
     Dates: start: 20060404
  6. ASPIRIN [Concomitant]
  7. PROZAC [Concomitant]
     Route: 048
     Dates: start: 20040911
  8. FLEXERIL [Concomitant]
  9. SEROQUEL [Suspect]
     Route: 048
     Dates: start: 20040911
  10. IBUPROFEN [Concomitant]
     Dates: start: 20050519
  11. SEROQUEL [Suspect]
     Route: 048
     Dates: start: 20050419

REACTIONS (2)
  - TYPE 2 DIABETES MELLITUS [None]
  - IMPAIRED FASTING GLUCOSE [None]
